FAERS Safety Report 5036734-8 (Version None)
Quarter: 2006Q2

REPORT INFORMATION
  Report Type: 
  Country: None (occurrence: None)
  Receive Date: 20060628
  Receipt Date: 20060617
  Transmission Date: 20061013
  Serious: Yes (Hospitalization)
  Sender: FDA-Public Use
  Company Number: SA-JNJFOC-20060604019

PATIENT
  Age: 30 Year
  Sex: Female

DRUGS (2)
  1. TOPAMAX [Suspect]
     Indication: MIGRAINE
     Route: 065
  2. IMIGRAN [Concomitant]
     Dosage: ON AND OFF
     Route: 048

REACTIONS (2)
  - PAPILLOEDEMA [None]
  - RETINAL VEIN OCCLUSION [None]
